FAERS Safety Report 13718887 (Version 2)
Quarter: 2017Q3

REPORT INFORMATION
  Report Type: Spontaneous
  Country: US (occurrence: US)
  Receive Date: 20170705
  Receipt Date: 20170922
  Transmission Date: 20171127
  Serious: No
  Sender: FDA-Public Use
  Company Number: US-JNJFOC-20170524717

PATIENT
  Sex: Female
  Weight: 79.38 kg

DRUGS (1)
  1. FENTANYL. [Suspect]
     Active Substance: FENTANYL
     Indication: SPINAL COLUMN STENOSIS
     Route: 062
     Dates: start: 20170426

REACTIONS (6)
  - Drug administered at inappropriate site [Recovered/Resolved]
  - Product quality issue [Unknown]
  - Hyperchlorhydria [Unknown]
  - Wrong technique in product usage process [Unknown]
  - Hypertension [Unknown]
  - Wrong technique in product usage process [Recovered/Resolved]

NARRATIVE: CASE EVENT DATE: 2017
